FAERS Safety Report 9289623 (Version 2)
Quarter: 2013Q2

REPORT INFORMATION
  Report Type: Spontaneous
  Country: AU (occurrence: AU)
  Receive Date: 20130515
  Receipt Date: 20130523
  Transmission Date: 20140414
  Serious: Yes (Hospitalization, Other)
  Sender: FDA-Public Use
  Company Number: AU-RANBAXY-2013RR-68823

PATIENT
  Age: 28 Year
  Sex: Female

DRUGS (1)
  1. PARACETAMOL [Suspect]
     Indication: PRODUCT USED FOR UNKNOWN INDICATION
     Dosage: 1 G FOUR TIMES DAILY AS NEEDED
     Route: 065

REACTIONS (6)
  - Pyroglutamate increased [Unknown]
  - Metabolic acidosis [Recovered/Resolved]
  - Liver function test abnormal [Recovered/Resolved]
  - Abdominal pain [None]
  - Diarrhoea [None]
  - Vomiting [None]
